FAERS Safety Report 7284718-1 (Version None)
Quarter: 2011Q1

REPORT INFORMATION
  Report Type: 
  Country: None (occurrence: None)
  Receive Date: 20110210
  Receipt Date: 20110201
  Transmission Date: 20110831
  Serious: Yes (Other)
  Sender: FDA-Public Use
  Company Number: US-BIOGENIDEC-2010BI044825

PATIENT
  Age: 43 Year
  Sex: Male

DRUGS (2)
  1. SILVER STATIN PILL (NOS) [Concomitant]
     Route: 048
  2. AVONEX [Suspect]
     Indication: MULTIPLE SCLEROSIS
     Route: 030
     Dates: start: 20091113

REACTIONS (2)
  - ANAPHYLACTIC REACTION [None]
  - FLUSHING [None]
